FAERS Safety Report 14390337 (Version 9)
Quarter: 2018Q3

REPORT INFORMATION
  Report Type: Report from Study
  Country: JP (occurrence: JP)
  Receive Date: 20180116
  Receipt Date: 20180926
  Transmission Date: 20181010
  Serious: Yes (Hospitalization)
  Sender: FDA-Public Use
  Company Number: JP-ROCHE-2023040

PATIENT
  Age: 64 Year
  Sex: Female
  Weight: 59.9 kg

DRUGS (23)
  1. CISPLATIN. [Suspect]
     Active Substance: CISPLATIN
     Indication: NON-SMALL CELL LUNG CANCER
     Dosage: ON DAY 1 OF EACH OF THE FOUR 21 DAY CYCLES?DATE OF MOST RECENT DOSE PRIOR TO AE ONSET: 14/SEP/2017 (
     Route: 042
     Dates: start: 20170704
  2. ROSUVASTATIN CALCIUM. [Concomitant]
     Active Substance: ROSUVASTATIN CALCIUM
     Indication: HYPERLIPIDAEMIA
     Route: 065
     Dates: start: 20180116
  3. RAMELTEON [Concomitant]
     Active Substance: RAMELTEON
     Indication: INSOMNIA
     Route: 065
     Dates: start: 20170703
  4. VALTREX [Concomitant]
     Active Substance: VALACYCLOVIR HYDROCHLORIDE
     Indication: HERPES ZOSTER
  5. ACICLOVIR [Concomitant]
     Active Substance: ACYCLOVIR
     Indication: HERPES SIMPLEX
     Route: 065
     Dates: start: 20171216, end: 20171228
  6. POLAPREZINC [Concomitant]
     Active Substance: POLAPREZINC
     Indication: DECREASED APPETITE
     Route: 065
     Dates: start: 20170803
  7. BROTIZOLAM [Concomitant]
     Active Substance: BROTIZOLAM
     Indication: INSOMNIA
  8. SENNOSIDE [Concomitant]
     Active Substance: SENNOSIDES
     Indication: CONSTIPATION
     Route: 065
     Dates: start: 20170708
  9. SUVOREXANT. [Concomitant]
     Active Substance: SUVOREXANT
     Indication: INSOMNIA
  10. METOCLOPRAMIDE. [Concomitant]
     Active Substance: METOCLOPRAMIDE
     Indication: PREMEDICATION
     Route: 065
     Dates: start: 20170704
  11. METOCLOPRAMIDE. [Concomitant]
     Active Substance: METOCLOPRAMIDE
     Route: 065
     Dates: start: 20170728
  12. MAGNESIUM OXIDE. [Concomitant]
     Active Substance: MAGNESIUM OXIDE
     Indication: CONSTIPATION
     Route: 065
     Dates: start: 20170708
  13. VONOPRAZAN FUMARATE [Concomitant]
     Active Substance: VONOPRAZAN FUMURATE
     Route: 065
     Dates: start: 20171109
  14. ALPRAZOLAM. [Concomitant]
     Active Substance: ALPRAZOLAM
     Indication: INSOMNIA
     Route: 065
     Dates: start: 20170705
  15. ESOMEPRAZOLE MAGNESIUM DIHYDRATE [Concomitant]
     Active Substance: ESOMEPRAZOLE MAGNESIUM
     Indication: DECREASED APPETITE
     Route: 065
     Dates: start: 20170712
  16. ATEZOLIZUMAB. [Suspect]
     Active Substance: ATEZOLIZUMAB
     Indication: NON-SMALL CELL LUNG CANCER
     Dosage: FOR 16 CYCLES (CYCLE LENGTH=21 DAYS)?DATE OF MOST RECENT DOSE PRIOR TO AE ONSET: 26/OCT/2017.
     Route: 042
     Dates: start: 20171026
  17. VINORELBINE [Suspect]
     Active Substance: VINORELBINE\VINORELBINE TARTRATE
     Indication: NON-SMALL CELL LUNG CANCER
     Dosage: ON DAYS 1 AND 8 OF EACH OF THE FOUR 21?DAY CYCLES?DATE OF MOST RECENT DOSE PRIOR TO AE ONSET: 21/SEP
     Route: 042
     Dates: start: 20170704
  18. LOXOPROFEN SODIUM HYDRATE [Concomitant]
     Active Substance: LOXOPROFEN SODIUM DIHYDRATE
     Indication: PAIN
     Route: 065
     Dates: start: 20170720
  19. TEPRENONE [Concomitant]
     Active Substance: TEPRENONE
     Indication: PAIN
     Route: 065
     Dates: start: 20170720
  20. MISOPROSTOL. [Concomitant]
     Active Substance: MISOPROSTOL
     Route: 065
     Dates: start: 20171107, end: 20171108
  21. VALACICLOVIR HYDROCHLORIDE [Concomitant]
     Active Substance: VALACYCLOVIR HYDROCHLORIDE
     Indication: HERPES SIMPLEX
     Route: 065
     Dates: start: 20171219, end: 20171228
  22. BISACODYL. [Concomitant]
     Active Substance: BISACODYL
     Indication: CONSTIPATION
     Route: 065
     Dates: start: 20170730
  23. CROTAMITON [Concomitant]
     Active Substance: CROTAMITON
     Indication: RASH
     Route: 065
     Dates: start: 20171111

REACTIONS (2)
  - Drug-induced liver injury [Recovered/Resolved]
  - Hypopituitarism [Recovered/Resolved]

NARRATIVE: CASE EVENT DATE: 20171107
